FAERS Safety Report 7831425-X (Version None)
Quarter: 2011Q4

REPORT INFORMATION
  Report Type: 
  Country: None (occurrence: None)
  Receive Date: 20111021
  Receipt Date: 20111017
  Transmission Date: 20120403
  Serious: Yes (Life-Threatening, Other)
  Sender: FDA-Public Use
  Company Number: FR-ASTRAZENECA-2011SE60755

PATIENT
  Age: 585 Month
  Sex: Male

DRUGS (2)
  1. ATACAND [Suspect]
     Indication: HYPERTENSION
     Route: 048
     Dates: start: 20091020, end: 20100315
  2. ATACAND [Suspect]
     Route: 048
     Dates: start: 20100315, end: 20100601

REACTIONS (2)
  - SUICIDE ATTEMPT [None]
  - MAJOR DEPRESSION [None]
